FAERS Safety Report 8472779-3 (Version None)
Quarter: 2012Q2

REPORT INFORMATION
  Report Type: 
  Country: None (occurrence: None)
  Receive Date: 20120622
  Receipt Date: 20120622
  Transmission Date: 20120825
  Serious: Yes (Other)
  Sender: FDA-Public Use
  Company Number: None

PATIENT
  Age: 32 Year
  Sex: Female
  Weight: 72.5755 kg

DRUGS (1)
  1. NUVIGIL [Suspect]
     Indication: SLEEP DISORDER
     Dosage: 250MG DAILY PO
     Route: 048
     Dates: start: 20110601, end: 20120615

REACTIONS (4)
  - CONFUSIONAL STATE [None]
  - MOTOR DYSFUNCTION [None]
  - DYSKINESIA [None]
  - VISION BLURRED [None]
